FAERS Safety Report 19993379 (Version 1)
Quarter: 2021Q4

REPORT INFORMATION
  Report Type: Spontaneous
  Country: GB (occurrence: GB)
  Receive Date: 20211025
  Receipt Date: 20211025
  Transmission Date: 20220304
  Serious: Yes (Other)
  Sender: FDA-Public Use
  Company Number: None

PATIENT
  Age: 69 Year
  Sex: Male
  Weight: 72.11 kg

DRUGS (5)
  1. FEXOFENADINE [Suspect]
     Active Substance: FEXOFENADINE HYDROCHLORIDE
     Indication: Fungal infection
     Dosage: 180 MILLIGRAM
     Route: 048
     Dates: start: 20210920, end: 20210920
  2. FEXOFENADINE HYDROCHLORIDE [Suspect]
     Active Substance: FEXOFENADINE HYDROCHLORIDE
     Indication: Fungal infection
     Dosage: UNK
     Route: 061
     Dates: start: 20210920, end: 20210920
  3. ASPIRIN [Concomitant]
     Active Substance: ASPIRIN
     Indication: Ill-defined disorder
     Dosage: UNK
  4. ECHINACEA PURPUREA WHOLE [Concomitant]
     Active Substance: ECHINACEA PURPUREA WHOLE
     Indication: Ill-defined disorder
     Dosage: UNK
  5. ACETAMINOPHEN [Concomitant]
     Active Substance: ACETAMINOPHEN
     Indication: Ill-defined disorder
     Dosage: UNK

REACTIONS (4)
  - Eye irritation [Not Recovered/Not Resolved]
  - Skin irritation [Not Recovered/Not Resolved]
  - Eczema [Recovering/Resolving]
  - Paraesthesia oral [Not Recovered/Not Resolved]

NARRATIVE: CASE EVENT DATE: 20210920
